FAERS Safety Report 25995868 (Version 1)
Quarter: 2025Q4

REPORT INFORMATION
  Report Type: Spontaneous
  Country: GB (occurrence: GB)
  Receive Date: 20251104
  Receipt Date: 20251104
  Transmission Date: 20260117
  Serious: Yes (Hospitalization)
  Sender: ALKEM
  Company Number: None

PATIENT
  Age: 38 Year
  Sex: Female

DRUGS (14)
  1. TOBRAMYCIN [Suspect]
     Active Substance: TOBRAMYCIN
     Indication: Cystic fibrosis
     Dosage: UNK
     Route: 065
  2. TOBRAMYCIN [Suspect]
     Active Substance: TOBRAMYCIN
     Indication: Condition aggravated
     Dosage: 330 MILLIGRAM, QD
     Route: 042
  3. TOBRAMYCIN [Suspect]
     Active Substance: TOBRAMYCIN
     Indication: Infection
     Dosage: UNK (DOSAGE WAS CHANGED TO 2-WEEK  COURSE)
     Route: 042
  4. TOBRAMYCIN [Suspect]
     Active Substance: TOBRAMYCIN
     Dosage: UNK (DOSAGE WAS CHANGED TO 2-WEEK  COURSE)
     Route: 042
  5. TOBRAMYCIN [Suspect]
     Active Substance: TOBRAMYCIN
     Dosage: 340 MILLIGRAM
     Route: 065
  6. DEXTROSE MONOHYDRATE [Suspect]
     Active Substance: DEXTROSE MONOHYDRATE
     Indication: Cystic fibrosis
     Dosage: 250 MILLILITER, TID (GLUCOSE 5 PERCENT INTRAVENOUS INFUSION BP)
     Route: 042
  7. COLISTIN SULFATE [Suspect]
     Active Substance: COLISTIN SULFATE
     Indication: Cystic fibrosis
     Dosage: UNK, TID (2 MILLION UNIT)
     Route: 042
  8. COLISTIN SULFATE [Suspect]
     Active Substance: COLISTIN SULFATE
     Indication: Condition aggravated
     Dosage: UNK, TID (2 MILLION UNIT)
     Route: 042
  9. COLISTIN SULFATE [Suspect]
     Active Substance: COLISTIN SULFATE
     Indication: Infection
     Dosage: UNK, TID (2 MILLION UNIT) DUAL THERAPY ALONGSIDE FOSFOMYCIN
     Route: 042
  10. FOSFOMYCIN [Suspect]
     Active Substance: FOSFOMYCIN
     Indication: Cystic fibrosis
     Dosage: UNK
     Route: 042
  11. FOSFOMYCIN [Suspect]
     Active Substance: FOSFOMYCIN
     Indication: Condition aggravated
     Dosage: 4 GRAM, TID
     Route: 042
  12. FOSFOMYCIN [Suspect]
     Active Substance: FOSFOMYCIN
     Indication: Infection
     Dosage: 2000 MILLIGRAM, TID (AS A DUAL THERAPY)
     Route: 042
  13. FOSFOMYCIN [Suspect]
     Active Substance: FOSFOMYCIN
     Dosage: UNK (DOSAGE WAS CHANGED TO 2-WEEK  COURSE)
     Route: 042
  14. FOSFOMYCIN [Suspect]
     Active Substance: FOSFOMYCIN
     Dosage: UNK (DOSAGE WAS CHANGED TO 2-WEEK  COURSE)
     Route: 042

REACTIONS (13)
  - General physical health deterioration [Unknown]
  - Malaise [Unknown]
  - Oxygen saturation decreased [Unknown]
  - Dyspnoea [Unknown]
  - Weight decreased [Unknown]
  - Nutritional condition abnormal [Unknown]
  - Haemoptysis [Unknown]
  - Underdose [Unknown]
  - Manufacturing laboratory analytical testing issue [Unknown]
  - Product strength confusion [Unknown]
  - Product appearance confusion [Unknown]
  - Product dispensing error [Unknown]
  - Product preparation error [Unknown]

NARRATIVE: CASE EVENT DATE: 20231223
